FAERS Safety Report 7501981-X (Version None)
Quarter: 2011Q2

REPORT INFORMATION
  Report Type: 
  Country: None (occurrence: None)
  Receive Date: 20110525
  Receipt Date: 20110512
  Transmission Date: 20111010
  Serious: Yes (Other)
  Sender: FDA-Public Use
  Company Number: ES-ELI_LILLY_AND_COMPANY-ES201105003582

PATIENT
  Sex: Female
  Weight: 70 kg

DRUGS (7)
  1. FORTEO [Suspect]
     Indication: OSTEOPOROSIS
     Dosage: 20 UG, QD
     Route: 058
     Dates: start: 20110311
  2. SERETIDE [Concomitant]
     Indication: ASTHMA
     Dosage: UNK, BID
     Route: 048
  3. ATORVASTATINA [Concomitant]
     Indication: BLOOD CHOLESTEROL
     Dosage: UNK, QD
     Route: 048
  4. ENANTYUM [Concomitant]
     Indication: PAIN
     Dosage: UNK
     Route: 048
     Dates: start: 20100801, end: 20110401
  5. VENTOLIN                                /SCH/ [Concomitant]
     Indication: ASTHMA
     Dosage: UNK, PRN
     Route: 055
  6. NOLOTIL [Concomitant]
     Indication: PAIN
     Dosage: UNK
     Route: 048
     Dates: start: 20100801, end: 20110401
  7. TRAMADOL HCL [Concomitant]
     Indication: PAIN
     Dosage: UNK
     Route: 048
     Dates: start: 20100801, end: 20110201

REACTIONS (3)
  - DEVICE DISLOCATION [None]
  - ARTHRALGIA [None]
  - FALL [None]
